FAERS Safety Report 13042680 (Version 1)
Quarter: 2016Q4

REPORT INFORMATION
  Report Type: Spontaneous
  Country: US (occurrence: US)
  Receive Date: 20161219
  Receipt Date: 20161219
  Transmission Date: 20170207
  Serious: No
  Sender: FDA-Public Use
  Company Number: US-PFIZER INC-2016580096

PATIENT
  Age: 65 Year
  Sex: Male

DRUGS (8)
  1. NIASPAN [Suspect]
     Active Substance: NIACIN
  2. ZOCOR [Suspect]
     Active Substance: SIMVASTATIN
  3. ACCUPRIL [Suspect]
     Active Substance: QUINAPRIL HYDROCHLORIDE
  4. CRESTOR [Suspect]
     Active Substance: ROSUVASTATIN CALCIUM
  5. LIPITOR [Suspect]
     Active Substance: ATORVASTATIN CALCIUM
  6. PRINIVIL [Suspect]
     Active Substance: LISINOPRIL
  7. TRICOR [Suspect]
     Active Substance: FENOFIBRATE
  8. PREDNISONE. [Suspect]
     Active Substance: PREDNISONE

REACTIONS (1)
  - Drug hypersensitivity [Unknown]

NARRATIVE: CASE EVENT DATE: 20130403
